FAERS Safety Report 9960312 (Version 2)
Quarter: 2014Q1

REPORT INFORMATION
  Report Type: Spontaneous
  Country: JP (occurrence: JP)
  Receive Date: 20140305
  Receipt Date: 20140331
  Transmission Date: 20141002
  Serious: Yes (Life-Threatening, Hospitalization)
  Sender: FDA-Public Use
  Company Number: JP-JNJFOC-20140217207

PATIENT
  Age: 81 Year
  Sex: Male
  Weight: 63 kg

DRUGS (12)
  1. XARELTO [Suspect]
     Indication: CEREBROVASCULAR ACCIDENT PROPHYLAXIS
     Route: 048
     Dates: start: 20140131, end: 20140217
  2. XARELTO [Suspect]
     Indication: ATRIAL FIBRILLATION
     Route: 048
     Dates: start: 20140131, end: 20140217
  3. SUNRYTHM [Concomitant]
     Route: 048
     Dates: start: 20140225
  4. SUNRYTHM [Concomitant]
     Route: 048
     Dates: start: 20070716, end: 20140217
  5. JUVELA NICOTINATE [Concomitant]
     Route: 048
     Dates: start: 20140225
  6. JUVELA NICOTINATE [Concomitant]
     Route: 048
     Dates: start: 200604, end: 20140217
  7. ALOSITOL [Concomitant]
     Route: 048
     Dates: start: 20140225
  8. ALOSITOL [Concomitant]
     Route: 048
     Dates: start: 200604, end: 20140217
  9. OLMETEC [Concomitant]
     Route: 048
     Dates: start: 20140225
  10. OLMETEC [Concomitant]
     Route: 048
     Dates: start: 20131008, end: 20140217
  11. CLEANAL [Concomitant]
     Route: 048
     Dates: start: 20130417
  12. AMBROXOL HYDROCHLORIDE [Concomitant]
     Route: 048
     Dates: start: 20120808

REACTIONS (1)
  - Interstitial lung disease [Not Recovered/Not Resolved]
